FAERS Safety Report 5051974-X (Version None)
Quarter: 2006Q3

REPORT INFORMATION
  Report Type: 
  Country: None (occurrence: None)
  Receive Date: 20060710
  Receipt Date: 20060625
  Transmission Date: 20061208
  Serious: Yes (Other)
  Sender: FDA-Public Use
  Company Number: 2006079812

PATIENT
  Sex: Male
  Weight: 77.1115 kg

DRUGS (3)
  1. VIAGRA [Suspect]
  2. ZOCOR [Concomitant]
  3. MOTRIN [Concomitant]

REACTIONS (6)
  - CATARACT OPERATION COMPLICATION [None]
  - EYE PAIN [None]
  - IMPAIRED HEALING [None]
  - INTRAOCULAR PRESSURE INCREASED [None]
  - PHOTOSENSITIVITY REACTION [None]
  - VISION BLURRED [None]
